FAERS Safety Report 7244601-4 (Version None)
Quarter: 2011Q1

REPORT INFORMATION
  Report Type: 
  Country: None (occurrence: None)
  Receive Date: 20110125
  Receipt Date: 20110118
  Transmission Date: 20110831
  Serious: Yes (Other)
  Sender: FDA-Public Use
  Company Number: US-RB-020985-11

PATIENT
  Age: 35 Year
  Sex: Female

DRUGS (5)
  1. SUBOXONE [Suspect]
     Indication: DRUG DEPENDENCE
     Route: 060
     Dates: start: 20080101, end: 20101201
  2. SUBOXONE [Suspect]
     Indication: DRUG DEPENDENCE
     Dosage: DOSE RANGED FROM 24-32 MG DAILY
     Route: 060
     Dates: start: 20101201
  3. ROBAXIN [Concomitant]
     Indication: PAIN
     Dosage: DOSING DETAILS UNKNOWN
     Route: 065
     Dates: start: 20080101
  4. ANTIDEPRESSANT [Suspect]
     Indication: DEPRESSION
     Dosage: DOSING DETAILS UNKNOWN
     Route: 065
     Dates: start: 20100101, end: 20100101
  5. IBUPROFEN [Concomitant]
     Indication: PAIN
     Dosage: DOSE VARIES AS NEEDED
     Route: 065

REACTIONS (5)
  - VISION BLURRED [None]
  - NAUSEA [None]
  - SCOTOMA [None]
  - OEDEMA PERIPHERAL [None]
  - HYPOVITAMINOSIS [None]
